FAERS Safety Report 19756351 (Version 2)
Quarter: 2021Q3

REPORT INFORMATION
  Report Type: Report from Study
  Country: US (occurrence: US)
  Receive Date: 20210827
  Receipt Date: 20210930
  Transmission Date: 20211014
  Serious: Yes (Hospitalization)
  Sender: FDA-Public Use
  Company Number: US-JNJFOC-20210837307

PATIENT
  Age: 24 Year
  Sex: Male
  Weight: 102.15 kg

DRUGS (8)
  1. SPRAVATO [Suspect]
     Active Substance: ESKETAMINE
     Indication: DEPRESSION
     Dosage: 56 MG, 1 TOTAL DOSE
     Dates: start: 20210420, end: 20210420
  2. SPRAVATO [Suspect]
     Active Substance: ESKETAMINE
     Dosage: 56 MG, 1 TOTAL DOSE
     Dates: start: 20210601, end: 20210601
  3. PROPRANOLOL [Concomitant]
     Active Substance: PROPRANOLOL HYDROCHLORIDE
     Dates: start: 202108
  4. SPRAVATO [Suspect]
     Active Substance: ESKETAMINE
     Dosage: 84 MG, 16 TOTAL DOSES
     Dates: start: 20210424, end: 20210526
  5. SPRAVATO [Suspect]
     Active Substance: ESKETAMINE
     Dosage: 84 MG, 1 TOTAL DOSE
     Dates: start: 20210603, end: 20210603
  6. SPRAVATO [Suspect]
     Active Substance: ESKETAMINE
     Dosage: 84 MG, 1 TOTAL DOSE
     Dates: start: 20210816
  7. ZOLOFT [Concomitant]
     Active Substance: SERTRALINE HYDROCHLORIDE
     Dates: start: 202108, end: 202109
  8. BUPROPION. [Concomitant]
     Active Substance: BUPROPION
     Dates: start: 202105, end: 202109

REACTIONS (2)
  - Product dose omission issue [Unknown]
  - Depression [Recovering/Resolving]
